FAERS Safety Report 5337196-3 (Version None)
Quarter: 2007Q2

REPORT INFORMATION
  Report Type: 
  Country: None (occurrence: None)
  Receive Date: 20070529
  Receipt Date: 20070524
  Transmission Date: 20071010
  Serious: Yes (Death, Hospitalization)
  Sender: FDA-Public Use
  Company Number: A0539356A

PATIENT
  Age: 54 Year
  Sex: Male

DRUGS (5)
  1. PAXIL [Suspect]
     Indication: DEPRESSION
     Dosage: 30MG AT NIGHT
     Route: 048
     Dates: start: 20020116, end: 20020214
  2. PREVACID [Concomitant]
  3. AMBIEN [Concomitant]
  4. SULFASALAZINE [Concomitant]
  5. PROTONIX [Concomitant]

REACTIONS (18)
  - ABNORMAL BEHAVIOUR [None]
  - ANOREXIA [None]
  - ANXIETY [None]
  - COLITIS [None]
  - COMPLETED SUICIDE [None]
  - CRYING [None]
  - DEPRESSION [None]
  - INCOHERENT [None]
  - INSOMNIA [None]
  - MALAISE [None]
  - NAUSEA [None]
  - NERVOUSNESS [None]
  - PAIN [None]
  - PARANOIA [None]
  - PSYCHOTIC DISORDER [None]
  - TENSION [None]
  - THINKING ABNORMAL [None]
  - VOMITING [None]
